FAERS Safety Report 11845462 (Version 2)
Quarter: 2015Q4

REPORT INFORMATION
  Report Type: Spontaneous
  Country: JP (occurrence: JP)
  Receive Date: 20151217
  Receipt Date: 20151230
  Transmission Date: 20160305
  Serious: Yes (Other)
  Sender: FDA-Public Use
  Company Number: JP-JNJFOC-20151210586

PATIENT
  Age: 86 Year
  Sex: Female

DRUGS (4)
  1. TRAMCET [Suspect]
     Active Substance: ACETAMINOPHEN\TRAMADOL
     Indication: CANCER PAIN
     Route: 048
  2. CELECOXIB. [Concomitant]
     Active Substance: CELECOXIB
     Indication: CANCER PAIN
     Route: 048
  3. TRASTUZUMAB EMTANSINE [Concomitant]
     Active Substance: ADO-TRASTUZUMAB EMTANSINE
     Indication: CANCER PAIN
     Route: 042
  4. PREGABALIN. [Concomitant]
     Active Substance: PREGABALIN
     Indication: CANCER PAIN
     Route: 048

REACTIONS (3)
  - Product use issue [Unknown]
  - Depressed level of consciousness [Unknown]
  - Off label use [Unknown]
